FAERS Safety Report 5239263-1 (Version None)
Quarter: 2007Q1

REPORT INFORMATION
  Report Type: 
  Country: None (occurrence: None)
  Receive Date: 20061208
  Receipt Date: 20051017
  Transmission Date: 20070707
  Serious: Yes (Other)
  Sender: FDA-Public Use
  Company Number: 2005UW13132

PATIENT
  Age: 50 Year
  Sex: Male
  Weight: 63.9572 kg

DRUGS (1)
  1. CRESTOR [Suspect]
     Dosage: 5 MG PO
     Route: 048

REACTIONS (1)
  - FLUSHING [None]
